FAERS Safety Report 23041703 (Version 2)
Quarter: 2023Q4

REPORT INFORMATION
  Report Type: Spontaneous
  Country: US (occurrence: US)
  Receive Date: 20231007
  Receipt Date: 20231026
  Transmission Date: 20240110
  Serious: Yes (Death, Other)
  Sender: FDA-Public Use
  Company Number: US-OPELLA-2023OHG003968

PATIENT
  Age: 58 Year
  Sex: Male

DRUGS (18)
  1. GOLD BOND ORIGINAL STRENGTH POWDER [Suspect]
     Active Substance: MENTHOL\ZINC OXIDE
     Indication: Product used for unknown indication
     Route: 065
  2. GOLD BOND ORIGINAL STRENGTH POWDER [Suspect]
     Active Substance: MENTHOL\ZINC OXIDE
     Route: 065
  3. NICOTINE [Concomitant]
     Active Substance: NICOTINE
     Dosage: APPLY 21MG AS DIRECTED ONCE DAILY.
  4. CISPLATIN [Concomitant]
     Active Substance: CISPLATIN
  5. HUMIRA [Concomitant]
     Active Substance: ADALIMUMAB
  6. FLUTICASONE [Concomitant]
     Active Substance: FLUTICASONE
     Dosage: 2 SPRAYS IN EACH NOSTRIL ONCE A DAY
  7. FOLIC ACID [Concomitant]
     Active Substance: FOLIC ACID
     Dosage: 1 TABLET DAILY BY ORAL
  8. GABAPENTIN [Concomitant]
     Active Substance: GABAPENTIN
     Dosage: 2 TABLETS DAILY BY ORAL FOR 90 DAYS
  9. IBUPROFEN [Concomitant]
     Active Substance: IBUPROFEN
     Dosage: 800 MG DAILY BY ORAL AS NEEDED.
  10. LINACLOTIDE [Concomitant]
     Active Substance: LINACLOTIDE
     Dosage: 800 MG DAILY BY ORAL AS NEEDED.
  11. LIDOCAINE [Concomitant]
     Active Substance: LIDOCAINE
     Dosage: TAKE 1 CAPSULE DAILY BY ORAL.
  12. LISINOPRIL [Concomitant]
     Active Substance: LISINOPRIL
     Dosage: TAKE 1 TABLET DAILY BY ORAL.
  13. LUBIPROSTONE [Concomitant]
     Active Substance: LUBIPROSTONE
     Dosage: TAKE 1 CAPSULE DAILY BY ORAL WITH MEALS.
  14. MAGNESIUM OXIDE [Concomitant]
     Active Substance: MAGNESIUM OXIDE
     Dosage: TAKE 1 CAPSULE TWICE DAILY BY ORAL WITH MEALS.
  15. NALOXONE [Concomitant]
     Active Substance: NALOXONE
     Dosage: USE 1 SPRAY IN NOSTRIL AS NEEDED.
  16. OLANZAPINE [Concomitant]
     Active Substance: OLANZAPINE
     Dosage: TAKE 1 TABLET AT NIGHT BEDTIME AS NEEDED.
  17. PROMETHAZINE [Concomitant]
     Active Substance: PROMETHAZINE HYDROCHLORIDE
     Dosage: TAKE 1 TABLET BY MOUTH EVERY 6 HOURS AS NEEDED.
  18. PREDNISONE [Concomitant]
     Active Substance: PREDNISONE
     Indication: Rheumatoid arthritis
     Dates: start: 2017

REACTIONS (7)
  - Mesothelioma malignant [Fatal]
  - Exposure to chemical pollution [Fatal]
  - Mesothelioma [Unknown]
  - Arthralgia [Unknown]
  - Brachial plexus injury [Unknown]
  - Decreased appetite [Unknown]
  - Dysgeusia [Unknown]

NARRATIVE: CASE EVENT DATE: 20210501
